FAERS Safety Report 17163109 (Version 2)
Quarter: 2019Q4

REPORT INFORMATION
  Report Type: Spontaneous
  Country: US (occurrence: US)
  Receive Date: 20191217
  Receipt Date: 20191226
  Transmission Date: 20200122
  Serious: No
  Sender: FDA-Public Use
  Company Number: US-IGSA-SR10009545

PATIENT
  Age: 64 Year
  Sex: Female
  Weight: 68 kg

DRUGS (16)
  1. GAMUNEX-C [Suspect]
     Active Substance: HUMAN IMMUNOGLOBULIN G
     Indication: HYPOGAMMAGLOBULINAEMIA
     Dosage: 30 G, Q.3WK.
     Route: 042
     Dates: start: 20191029
  2. LEVALBUTEROL                       /01419301/ [Concomitant]
     Active Substance: LEVALBUTEROL
  3. DETROL LA [Concomitant]
     Active Substance: TOLTERODINE TARTRATE
  4. CELEBREX [Concomitant]
     Active Substance: CELECOXIB
  5. ACETAMINOPHEN. [Concomitant]
     Active Substance: ACETAMINOPHEN
     Indication: PREMEDICATION
     Dosage: 650 MG, UNK
     Route: 048
     Dates: start: 20191029
  6. CRESTOR [Concomitant]
     Active Substance: ROSUVASTATIN CALCIUM
  7. GAMUNEX-C [Suspect]
     Active Substance: HUMAN IMMUNOGLOBULIN G
     Dosage: 30 G, Q.3WK.
     Route: 042
     Dates: start: 20121010
  8. DIPHENHYDRAMINE. [Concomitant]
     Active Substance: DIPHENHYDRAMINE
  9. EPINEPHRINE. [Concomitant]
     Active Substance: EPINEPHRINE
  10. METHYLPREDNISOLONE. [Concomitant]
     Active Substance: METHYLPREDNISOLONE
  11. NORMAL SALINE [Concomitant]
     Active Substance: SODIUM CHLORIDE
  12. ROSUVASTATIN. [Concomitant]
     Active Substance: ROSUVASTATIN
  13. DEXTROSE 5% [Concomitant]
     Active Substance: DEXTROSE
  14. SINGULAIR [Concomitant]
     Active Substance: MONTELUKAST SODIUM
  15. RANITIDINE. [Concomitant]
     Active Substance: RANITIDINE
  16. CELEXA [Concomitant]
     Active Substance: CITALOPRAM HYDROBROMIDE

REACTIONS (4)
  - Rash [Unknown]
  - Pruritus [Unknown]
  - Urticaria [Unknown]
  - Erythema [Unknown]

NARRATIVE: CASE EVENT DATE: 20191029
